FAERS Safety Report 4384895-6 (Version None)
Quarter: 2004Q2

REPORT INFORMATION
  Report Type: 
  Country: None (occurrence: None)
  Receive Date: 20040622
  Receipt Date: 20040608
  Transmission Date: 20050107
  Serious: Yes (Hospitalization)
  Sender: FDA-Public Use
  Company Number: AU-JNJFOC-20040603396

PATIENT
  Age: 76 Year
  Sex: Male

DRUGS (5)
  1. TRAMADOL HCL [Suspect]
     Indication: PAIN
     Dosage: SEE IMAGE
     Dates: start: 20040501, end: 20040509
  2. TRAMADOL HCL [Suspect]
     Indication: PAIN
     Dosage: SEE IMAGE
     Dates: start: 20040509, end: 20040514
  3. LACTULSOE (LACTULOSE) [Concomitant]
  4. ALDACTONE (ALDACTONE) [Concomitant]
  5. FUROSEMIDE [Concomitant]

REACTIONS (1)
  - TARDIVE DYSKINESIA [None]
